FAERS Safety Report 16686369 (Version 1)
Quarter: 2019Q3

REPORT INFORMATION
  Report Type: Spontaneous
  Country: GB (occurrence: GB)
  Receive Date: 20190809
  Receipt Date: 20190809
  Transmission Date: 20191004
  Serious: Yes (Other)
  Sender: FDA-Public Use
  Company Number: GB-TEVA-2019-GB-1089575

PATIENT
  Age: 86 Year
  Sex: Female
  Weight: 97 kg

DRUGS (16)
  1. PREDNISOLONE. [Concomitant]
     Active Substance: PREDNISOLONE
     Dates: start: 20190425, end: 20190523
  2. AMOXICILLIN. [Concomitant]
     Active Substance: AMOXICILLIN
     Dates: start: 20190425, end: 20190430
  3. PARACETAMOL [Concomitant]
     Active Substance: ACETAMINOPHEN
     Dates: start: 20180306
  4. TOLTERODINE TARTRATE. [Concomitant]
     Active Substance: TOLTERODINE TARTRATE
     Dates: start: 20180306
  5. HYLO-TEAR [Concomitant]
     Dosage: USE AS DIRECTED
     Dates: start: 20180306
  6. ZEROBASE [Concomitant]
     Active Substance: MINERAL OIL\PARAFFIN
     Indication: DRY SKIN
     Dates: start: 20190326, end: 20190423
  7. PAROXETINE. [Concomitant]
     Active Substance: PAROXETINE
     Dates: start: 20180306
  8. NITROFURANTOIN. [Concomitant]
     Active Substance: NITROFURANTOIN
     Dates: start: 20190516, end: 20190523
  9. RAMIPRIL. [Suspect]
     Active Substance: RAMIPRIL
     Route: 048
     Dates: start: 20190531, end: 20190624
  10. FUROSEMIDE. [Concomitant]
     Active Substance: FUROSEMIDE
     Dosage: TAKE ONE IN THE MORNING ADDITIONALLY TO ...
     Dates: start: 20180309
  11. OMEPRAZOLE. [Concomitant]
     Active Substance: OMEPRAZOLE
     Dates: start: 20180306
  12. BISOPROLOL [Concomitant]
     Active Substance: BISOPROLOL
     Dates: start: 20180306
  13. HYLO-FORTE [Concomitant]
     Active Substance: HYALURONATE SODIUM
     Dosage: AS DIRECTED (DISCARD 6 MONTHS AFTER OPENI...
     Dates: start: 20190424
  14. DIGOXIN. [Concomitant]
     Active Substance: DIGOXIN
     Dates: start: 20180306
  15. GLICLAZIDE [Concomitant]
     Active Substance: GLICLAZIDE
     Dosage: EVERY MORNING
     Dates: start: 20180306
  16. WARFARIN SODIUM. [Concomitant]
     Active Substance: WARFARIN SODIUM
     Dosage: AS DIRECTED
     Dates: start: 20180306

REACTIONS (3)
  - Swelling [Unknown]
  - Swelling face [Unknown]
  - Pruritus generalised [Unknown]

NARRATIVE: CASE EVENT DATE: 20190624
